FAERS Safety Report 8958069 (Version 1)
Quarter: 2012Q4

REPORT INFORMATION
  Report Type: 
  Country: NL (occurrence: NL)
  Receive Date: 20121211
  Receipt Date: 20121211
  Transmission Date: 20130627
  Serious: Yes (Other)
  Sender: FDA-Public Use
  Company Number: PHHY2012NL112972

PATIENT
  Age: 65 Year
  Sex: Male
  Weight: 79 kg

DRUGS (5)
  1. SANDOSTATIN LAR [Suspect]
     Indication: NEUROENDOCRINE TUMOUR
     Dosage: 30 mg, once per 4 weeks
     Dates: start: 20090917
  2. TAMSULOSIN [Suspect]
     Dosage: 1.25 mg, QD
  3. ASCAL [Concomitant]
     Dosage: 100 mg, QD
  4. SIMVASTATINE [Concomitant]
     Dosage: 40 mg, QD
  5. PERINDOPRIL [Concomitant]
     Dosage: 1.25 mg, UNK

REACTIONS (6)
  - Urinary tract disorder [Unknown]
  - Haematuria [Unknown]
  - Prostatomegaly [Unknown]
  - Feeling abnormal [Unknown]
  - Nausea [Unknown]
  - Dizziness [Unknown]
